FAERS Safety Report 14113115 (Version 5)
Quarter: 2018Q3

REPORT INFORMATION
  Report Type: Spontaneous
  Country: PT (occurrence: PT)
  Receive Date: 20171023
  Receipt Date: 20180704
  Transmission Date: 20181010
  Serious: Yes (Other)
  Sender: FDA-Public Use
  Company Number: PT-ROCHE-2011383

PATIENT
  Sex: Male

DRUGS (1)
  1. VISMODEGIB. [Suspect]
     Active Substance: VISMODEGIB
     Indication: BASAL CELL CARCINOMA
     Route: 065

REACTIONS (10)
  - Self esteem decreased [Not Recovered/Not Resolved]
  - Toothache [Not Recovered/Not Resolved]
  - Carotid artery aneurysm [Recovered/Resolved]
  - Mastication disorder [Not Recovered/Not Resolved]
  - Quality of life decreased [Not Recovered/Not Resolved]
  - Pain [Not Recovered/Not Resolved]
  - Confusional state [Not Recovered/Not Resolved]
  - Tooth loss [Not Recovered/Not Resolved]
  - Apathy [Not Recovered/Not Resolved]
  - Dental restoration failure [Not Recovered/Not Resolved]
